FAERS Safety Report 16689590 (Version 1)
Quarter: 2019Q3

REPORT INFORMATION
  Report Type: Spontaneous
  Country: BR (occurrence: BR)
  Receive Date: 20190809
  Receipt Date: 20190809
  Transmission Date: 20191004
  Serious: Yes (Disabling)
  Sender: FDA-Public Use
  Company Number: BR-009507513-1908BRA001626

PATIENT
  Age: 56 Year
  Sex: Female
  Weight: 86 kg

DRUGS (5)
  1. NOVOLIN [Concomitant]
     Active Substance: INSULIN HUMAN
     Indication: TYPE 2 DIABETES MELLITUS
     Dosage: 25 ML BY THE MORNING AND 25 ML AT NIGHT
     Dates: start: 201808
  2. GLIMEPIRIDE. [Concomitant]
     Active Substance: GLIMEPIRIDE
     Indication: TYPE 2 DIABETES MELLITUS
     Dosage: 1 TABLET BY THE MORNING AND 1 TABLET AFTER LUNCH
     Route: 048
     Dates: start: 2014
  3. JANUMET [Suspect]
     Active Substance: METFORMIN HYDROCHLORIDE\SITAGLIPTIN PHOSPHATE
     Indication: TYPE 2 DIABETES MELLITUS
     Dosage: 1 TABLET, QD BY MEDICAL PRESCRIPTION
     Route: 048
     Dates: start: 201907, end: 201907
  4. JANUMET [Suspect]
     Active Substance: METFORMIN HYDROCHLORIDE\SITAGLIPTIN PHOSPHATE
     Indication: THYROID MASS
  5. ABLOK PLUS [Concomitant]
     Active Substance: ATENOLOL\CHLORTHALIDONE
     Indication: HYPERTENSION
     Dosage: 1 TABLET BY THE MORNING AND 1 TABLET AT NIGHT
     Route: 048
     Dates: start: 2005

REACTIONS (8)
  - Vulvovaginal dryness [Recovered/Resolved]
  - Product use in unapproved indication [Unknown]
  - Retching [Recovered/Resolved]
  - Product prescribing issue [Unknown]
  - Vaginal infection [Recovered/Resolved]
  - Diarrhoea [Recovered/Resolved]
  - Abdominal pain [Recovered/Resolved]
  - Inappropriate schedule of product administration [Unknown]

NARRATIVE: CASE EVENT DATE: 201907
